FAERS Safety Report 5475056-8 (Version None)
Quarter: 2007Q4

REPORT INFORMATION
  Report Type: 
  Country: None (occurrence: None)
  Receive Date: 20071002
  Receipt Date: 20070925
  Transmission Date: 20080405
  Serious: Yes (Other)
  Sender: FDA-Public Use
  Company Number: PHBS2007JP13821

PATIENT
  Age: 74 Year
  Sex: Male

DRUGS (10)
  1. COMTAN [Suspect]
     Indication: PARKINSON'S DISEASE
     Dosage: 200 MG, TID
     Route: 048
     Dates: start: 20070808, end: 20070815
  2. COMTAN [Suspect]
     Dosage: 100 MG, TID
     Route: 048
     Dates: start: 20070820
  3. COMTAN [Suspect]
     Dosage: 100 MG, TID
     Route: 048
     Dates: start: 20070707, end: 20070807
  4. CARBIDOPA AND LEVODOPA [Concomitant]
     Indication: PARKINSON'S DISEASE
     Dosage: 100 MG, 5QD
     Route: 048
  5. MADOPAR [Concomitant]
     Dosage: 300 MG/D
     Route: 048
  6. FP [Concomitant]
     Dosage: 10 MG/D
     Route: 048
  7. SIFROL [Suspect]
     Dosage: 3 MG/D
     Route: 048
     Dates: start: 20070801, end: 20070813
  8. SIFROL [Suspect]
     Dosage: 1.5 MG/D
     Route: 048
     Dates: start: 20070817, end: 20070826
  9. SIFROL [Suspect]
     Dosage: 3 MG/D
     Route: 048
     Dates: start: 20070827
  10. SIFROL [Suspect]
     Dosage: 1.5 MG/D
     Route: 048

REACTIONS (6)
  - CONFUSIONAL STATE [None]
  - DELUSION [None]
  - DRUG EFFECT DECREASED [None]
  - HALLUCINATION [None]
  - HYDROCELE EXCISION [None]
  - RESTLESSNESS [None]
